FAERS Safety Report 13783956 (Version 1)
Quarter: 2017Q3

REPORT INFORMATION
  Report Type: Spontaneous
  Country: LV (occurrence: LV)
  Receive Date: 20170724
  Receipt Date: 20170724
  Transmission Date: 20171127
  Serious: Yes (Other)
  Sender: FDA-Public Use
  Company Number: PHBS2017LV000449

PATIENT
  Age: 26 Year
  Sex: Female
  Weight: 58 kg

DRUGS (3)
  1. AZITROMICIN SANDOZ [Suspect]
     Active Substance: AZITHROMYCIN
     Indication: PHARYNGITIS BACTERIAL
     Dosage: 500 MG, QD
     Route: 048
     Dates: start: 20170608, end: 20170609
  2. NODRYL [Concomitant]
     Indication: RHINITIS
     Route: 045
     Dates: start: 20170608, end: 20170612
  3. NOOFEN [Concomitant]
     Indication: ANXIETY
     Dosage: 250 MG, BID
     Route: 048
     Dates: start: 20170301, end: 20170403

REACTIONS (5)
  - Hemiparesis [Recovered/Resolved]
  - Vomiting [Recovering/Resolving]
  - Diarrhoea [Recovering/Resolving]
  - Abdominal pain upper [Recovering/Resolving]
  - Agitation [Recovered/Resolved]

NARRATIVE: CASE EVENT DATE: 20170609
